FAERS Safety Report 8602426-9 (Version None)
Quarter: 2012Q3

REPORT INFORMATION
  Report Type: 
  Country: None (occurrence: None)
  Receive Date: 20120817
  Receipt Date: 20120807
  Transmission Date: 20120928
  Serious: Yes (Other)
  Sender: FDA-Public Use
  Company Number: US-ROCHE-613685

PATIENT
  Sex: Female
  Weight: 59.474 kg

DRUGS (5)
  1. COPEGUS [Suspect]
     Indication: HEPATITIS C
     Route: 065
  2. PEGASYS [Suspect]
     Indication: HEPATITIS C
  3. COPEGUS [Suspect]
     Route: 048
     Dates: start: 20120313, end: 20120515
  4. INCIVEK [Suspect]
     Indication: HEPATITIS C
     Route: 048
     Dates: start: 20120313, end: 20120515
  5. PEGASYS [Suspect]
     Route: 042
     Dates: start: 20120313, end: 20120515

REACTIONS (3)
  - RASH [None]
  - RASH MACULO-PAPULAR [None]
  - GENERALISED OEDEMA [None]
